FAERS Safety Report 6976301-X (Version None)
Quarter: 2010Q3

REPORT INFORMATION
  Report Type: 
  Country: None (occurrence: None)
  Receive Date: 20100910
  Receipt Date: 20090416
  Transmission Date: 20110219
  Serious: No
  Sender: FDA-Public Use
  Company Number: US-WYE-H08991309

PATIENT
  Sex: Female
  Weight: 83.99 kg

DRUGS (4)
  1. PRISTIQ [Suspect]
     Indication: ANXIETY
     Route: 048
     Dates: start: 20090410, end: 20090415
  2. PRISTIQ [Suspect]
     Indication: PANIC ATTACK
  3. PRISTIQ [Suspect]
     Indication: DEPRESSION
  4. KLONOPIN [Concomitant]

REACTIONS (6)
  - ABDOMINAL PAIN [None]
  - DIARRHOEA [None]
  - HEADACHE [None]
  - NERVOUSNESS [None]
  - PARAESTHESIA ORAL [None]
  - TONGUE DRY [None]
